FAERS Safety Report 7963893-7 (Version None)
Quarter: 2011Q4

REPORT INFORMATION
  Report Type: 
  Country: None (occurrence: None)
  Receive Date: 20111208
  Receipt Date: 20111129
  Transmission Date: 20120403
  Serious: Yes (Death, Hospitalization, Other)
  Sender: FDA-Public Use
  Company Number: US-BAYER-201012135NA

PATIENT
  Age: 79 Year
  Sex: Male
  Weight: 81.633 kg

DRUGS (25)
  1. TRASYLOL [Suspect]
     Indication: CORONARY ARTERY BYPASS
     Dosage: 1 ML INTIAL (TEST) DOSE
     Route: 042
     Dates: start: 20020626, end: 20020626
  2. ATENOLOL [Concomitant]
     Indication: PRODUCT USED FOR UNKNOWN INDICATION
     Dosage: 50 MG, UNK
     Route: 048
     Dates: start: 19920101
  3. IBUPROFEN [Concomitant]
     Indication: SPONDYLITIS
     Dosage: UNK
     Route: 048
     Dates: start: 19920101
  4. ANCEF [Concomitant]
     Indication: CORONARY ARTERY BYPASS
     Dosage: 2 G, UNK
     Route: 042
     Dates: start: 20020626, end: 20020626
  5. TRASYLOL [Suspect]
     Dosage: 50CC/HR
     Route: 042
     Dates: start: 20020626, end: 20020626
  6. ZOCOR [Concomitant]
     Indication: PRODUCT USED FOR UNKNOWN INDICATION
     Route: 048
  7. LOPRESSOR [Concomitant]
     Indication: PRODUCT USED FOR UNKNOWN INDICATION
     Dosage: 50 MG, BID
     Route: 048
  8. LOVENOX [Concomitant]
     Indication: PRODUCT USED FOR UNKNOWN INDICATION
     Dosage: UNK
     Route: 058
     Dates: end: 20020808
  9. LEVOTHYROXINE SODIUM [Concomitant]
     Indication: PRODUCT USED FOR UNKNOWN INDICATION
     Route: 048
  10. AMIDATE [Concomitant]
     Indication: PRODUCT USED FOR UNKNOWN INDICATION
     Dosage: 20 MG, UNK
     Route: 042
     Dates: start: 20020626, end: 20020626
  11. FENTANYL-100 [Concomitant]
     Indication: PRODUCT USED FOR UNKNOWN INDICATION
     Dosage: APPROX 255MCG
     Route: 042
     Dates: start: 20020626, end: 20020626
  12. EPINEPHRINE [Concomitant]
     Indication: PRODUCT USED FOR UNKNOWN INDICATION
     Dosage: APPROX 30
     Route: 042
     Dates: start: 20020626, end: 20020626
  13. TRIDIL [Concomitant]
     Indication: PRODUCT USED FOR UNKNOWN INDICATION
     Route: 048
  14. DOBUTREX [Concomitant]
     Indication: PRODUCT USED FOR UNKNOWN INDICATION
     Dosage: UNK
     Route: 042
     Dates: start: 20020626, end: 20020827
  15. LIDOCAINE [Concomitant]
     Indication: PRODUCT USED FOR UNKNOWN INDICATION
     Dosage: UNK
  16. MANNITOL [Concomitant]
     Indication: PRODUCT USED FOR UNKNOWN INDICATION
     Dosage: UNK
     Route: 042
     Dates: start: 20020626, end: 20020827
  17. AMINOPHYLLINE [Concomitant]
     Indication: PRODUCT USED FOR UNKNOWN INDICATION
     Dosage: UNK
     Route: 042
     Dates: start: 20020626, end: 20020827
  18. TRASYLOL [Suspect]
     Dosage: 100 CC/HR FOR 200 CC LOADING DOSE
     Route: 042
     Dates: start: 20020626, end: 20020626
  19. TRIDIL [Concomitant]
     Indication: CORONARY ARTERY BYPASS
     Dosage: TITRATE
     Dates: start: 20020626, end: 20020626
  20. INTEGRILIN [Concomitant]
     Indication: PRODUCT USED FOR UNKNOWN INDICATION
     Dosage: DRIP
     Route: 042
     Dates: start: 20020624
  21. INSULIN [Concomitant]
     Indication: PRODUCT USED FOR UNKNOWN INDICATION
     Dosage: UNK
     Route: 042
     Dates: start: 20020626, end: 20020827
  22. PROTONIX [Concomitant]
     Indication: PRODUCT USED FOR UNKNOWN INDICATION
     Route: 048
  23. SUCCINYLCHOLINE CHLORIDE [Concomitant]
     Indication: PRODUCT USED FOR UNKNOWN INDICATION
     Dosage: 54 MG, UNK
     Route: 042
     Dates: start: 20020626, end: 20020626
  24. VERSED [Concomitant]
     Indication: PRODUCT USED FOR UNKNOWN INDICATION
     Dosage: 5 MG, UNK
     Route: 042
     Dates: start: 20020626, end: 20020626
  25. NITROGLYCERIN [Concomitant]
     Indication: CORONARY ARTERY BYPASS
     Dosage: APPROX.12CC
     Route: 042
     Dates: start: 20020626, end: 20020626

REACTIONS (14)
  - CEREBROVASCULAR ACCIDENT [None]
  - MYOCARDIAL INFARCTION [None]
  - RENAL IMPAIRMENT [None]
  - ANXIETY [None]
  - UNEVALUABLE EVENT [None]
  - DEATH [None]
  - RENAL FAILURE [None]
  - MULTI-ORGAN FAILURE [None]
  - RENAL INJURY [None]
  - PAIN [None]
  - STRESS [None]
  - INJURY [None]
  - EMOTIONAL DISTRESS [None]
  - FEAR [None]
